FAERS Safety Report 24064923 (Version 2)
Quarter: 2024Q4

REPORT INFORMATION
  Report Type: Spontaneous
  Country: GB (occurrence: GB)
  Receive Date: 20240709
  Receipt Date: 20241108
  Transmission Date: 20250115
  Serious: Yes (Other)
  Sender: NOVARTIS
  Company Number: GB-002147023-NVSC2024GB107094

PATIENT
  Age: 61 Year
  Sex: Female
  Weight: 53 kg

DRUGS (7)
  1. LUTATHERA [Suspect]
     Active Substance: LUTETIUM OXODOTREOTIDE LU-177
     Indication: Primitive neuroectodermal tumour
     Dosage: 7.4 GBQ
     Route: 042
     Dates: start: 20240402
  2. DIAZOXIDE [Concomitant]
     Active Substance: DIAZOXIDE
     Indication: Hypoglycaemia
     Dosage: 100 MG
     Route: 048
  3. DIAZOXIDE [Concomitant]
     Active Substance: DIAZOXIDE
     Dosage: 50 MG
     Route: 048
  4. DIAZOXIDE [Concomitant]
     Active Substance: DIAZOXIDE
     Dosage: 100 MG
     Route: 048
  5. DIAZOXIDE [Concomitant]
     Active Substance: DIAZOXIDE
     Dosage: 150 MG
     Route: 048
  6. PROPRANOLOL [Concomitant]
     Active Substance: PROPRANOLOL HYDROCHLORIDE
     Indication: Product used for unknown indication
     Dosage: 40 MG, BID
     Route: 048
  7. OMEPRAZOLE [Concomitant]
     Active Substance: OMEPRAZOLE
     Indication: Gastrooesophageal reflux disease
     Dosage: 20 MG, QD
     Route: 048

REACTIONS (3)
  - Leukopenia [Not Recovered/Not Resolved]
  - Ill-defined disorder [Unknown]
  - Full blood count decreased [Unknown]

NARRATIVE: CASE EVENT DATE: 20240501
